FAERS Safety Report 6983668-5 (Version None)
Quarter: 2010Q3

REPORT INFORMATION
  Report Type: 
  Country: None (occurrence: None)
  Receive Date: 20100914
  Receipt Date: 20050225
  Transmission Date: 20110219
  Serious: Yes (Death)
  Sender: FDA-Public Use
  Company Number: US-WYE-H07075508

PATIENT
  Age: 32 Year
  Sex: Male
  Weight: 109 kg

DRUGS (9)
  1. IBUPROFEN [Suspect]
     Dosage: UNKNOWN
     Route: 065
  2. HEROIN [Suspect]
     Dosage: UNKNOWN
     Route: 065
  3. CODEINE [Suspect]
     Dosage: UNKNOWN
     Route: 065
  4. CAFFEINE [Suspect]
     Dosage: UNKNOWN
     Route: 065
  5. METHADONE [Suspect]
     Dosage: UNKNOWN
     Route: 065
  6. COCAINE [Suspect]
     Dosage: UNKNOWN
     Route: 065
  7. ACETAMINOPHEN [Suspect]
     Dosage: UNKNOWN
     Route: 065
  8. OXYCODONE HCL [Suspect]
     Dosage: UNKNOWN
     Route: 065
  9. DIPHENHYDRAMINE HYDROCHLORIDE [Suspect]
     Dosage: UNKNOWN
     Route: 065

REACTIONS (6)
  - ACCIDENTAL OVERDOSE [None]
  - ARTERIOSCLEROSIS CORONARY ARTERY [None]
  - DRUG TOXICITY [None]
  - HEPATIC CIRRHOSIS [None]
  - INFECTION [None]
  - SEPSIS [None]
